FAERS Safety Report 17414997 (Version 1)
Quarter: 2020Q1

REPORT INFORMATION
  Report Type: Spontaneous
  Country: IT (occurrence: IT)
  Receive Date: 20200213
  Receipt Date: 20200213
  Transmission Date: 20200409
  Serious: Yes (Other)
  Sender: FDA-Public Use
  Company Number: IT-IBIGEN-2020.08248

PATIENT
  Age: 60 Year
  Sex: Male
  Weight: 0 kg

DRUGS (4)
  1. PANTORC [Concomitant]
     Active Substance: PANTOPRAZOLE SODIUM
  2. CLEXANE [Concomitant]
     Active Substance: ENOXAPARIN SODIUM
  3. LONGASTATINA [Concomitant]
     Active Substance: OCTREOTIDE ACETATE
     Dosage: ?
  4. PIPERACILLINA E TAZOBACTAM IBIGEN 4 G/ 0,5 G POLVERE PER SOLUZIONE PER [Suspect]
     Active Substance: PIPERACILLIN SODIUM\TAZOBACTAM SODIUM
     Indication: ABDOMINAL INFECTION
     Route: 042
     Dates: start: 20191220, end: 20191230

REACTIONS (1)
  - Red blood cell count decreased [Unknown]

NARRATIVE: CASE EVENT DATE: 20191230
